FAERS Safety Report 12633285 (Version 2)
Quarter: 2016Q3

REPORT INFORMATION
  Report Type: Spontaneous
  Country: US (occurrence: US)
  Receive Date: 20160808
  Receipt Date: 20160808
  Transmission Date: 20161109
  Serious: No
  Sender: FDA-Public Use
  Company Number: US-BEH-2016060348

PATIENT
  Sex: Male
  Weight: 34 kg

DRUGS (12)
  1. HIZENTRA [Suspect]
     Active Substance: HUMAN IMMUNOGLOBULIN G
     Route: 058
  2. SINGULAIR [Concomitant]
     Active Substance: MONTELUKAST SODIUM
  3. ACETAMINOPHEN. [Concomitant]
     Active Substance: ACETAMINOPHEN
  4. ASMANEX [Concomitant]
     Active Substance: MOMETASONE FUROATE
  5. EPIPEN [Concomitant]
     Active Substance: EPINEPHRINE
  6. XYZAL [Concomitant]
     Active Substance: LEVOCETIRIZINE DIHYDROCHLORIDE
  7. HIZENTRA [Suspect]
     Active Substance: HUMAN IMMUNOGLOBULIN G
     Route: 058
  8. PATADAY [Concomitant]
     Active Substance: OLOPATADINE HYDROCHLORIDE
  9. HIZENTRA [Suspect]
     Active Substance: HUMAN IMMUNOGLOBULIN G
     Indication: IMMUNODEFICIENCY COMMON VARIABLE
     Route: 058
  10. DIPHENHYDRAMINE. [Concomitant]
     Active Substance: DIPHENHYDRAMINE
  11. VENTOLIN [Concomitant]
     Active Substance: ALBUTEROL SULFATE
  12. FLONASE [Concomitant]
     Active Substance: FLUTICASONE PROPIONATE

REACTIONS (1)
  - Ear infection [Unknown]
